FAERS Safety Report 23994451 (Version 3)
Quarter: 2025Q4

REPORT INFORMATION
  Report Type: Report from Study
  Country: EU (occurrence: EU)
  Receive Date: 20240620
  Receipt Date: 20251107
  Transmission Date: 20260119
  Serious: Yes (Other)
  Sender: EXELIXIS
  Company Number: EU-IPSEN Group, Research and Development-2024-11997

PATIENT

DRUGS (28)
  1. CABOZANTINIB [Suspect]
     Active Substance: CABOZANTINIB
     Indication: Renal cell carcinoma
     Dosage: 40 MG, QD
     Route: 048
     Dates: start: 20231221, end: 20240312
  2. CABOZANTINIB [Suspect]
     Active Substance: CABOZANTINIB
     Dosage: 30 MG, QD
     Route: 048
     Dates: start: 20240410, end: 20250710
  3. CABOZANTINIB [Suspect]
     Active Substance: CABOZANTINIB
     Dosage: 34 MG, QD
     Route: 048
     Dates: start: 20250711, end: 20250729
  4. CABOZANTINIB [Suspect]
     Active Substance: CABOZANTINIB
     Dosage: 34 MG, QD
     Route: 048
     Dates: start: 20250812
  5. NIVOLUMAB [Suspect]
     Active Substance: NIVOLUMAB
     Indication: Renal cell carcinoma
     Dosage: 480 MG ONCE
     Route: 042
     Dates: start: 20231221
  6. NIVOLUMAB [Suspect]
     Active Substance: NIVOLUMAB
     Dosage: 480 MG ONCE
     Route: 042
     Dates: start: 20240118
  7. NIVOLUMAB [Suspect]
     Active Substance: NIVOLUMAB
     Dosage: 480 MG ONCE
     Route: 042
     Dates: start: 20240215
  8. NIVOLUMAB [Suspect]
     Active Substance: NIVOLUMAB
     Dosage: 480 MG ONCE
     Route: 042
     Dates: start: 20240314
  9. NIVOLUMAB [Suspect]
     Active Substance: NIVOLUMAB
     Dosage: 480 MG ONCE
     Route: 042
     Dates: start: 20240410
  10. NIVOLUMAB [Suspect]
     Active Substance: NIVOLUMAB
     Dosage: 480 MG ONCE
     Route: 042
     Dates: start: 20240510
  11. NIVOLUMAB [Suspect]
     Active Substance: NIVOLUMAB
     Dosage: 480 MG ONCE
     Route: 042
     Dates: start: 20240611
  12. NIVOLUMAB [Suspect]
     Active Substance: NIVOLUMAB
     Dosage: 480 MG ONCE
     Route: 042
     Dates: start: 20240703
  13. NIVOLUMAB [Suspect]
     Active Substance: NIVOLUMAB
     Dosage: 480 MG ONCE
     Route: 042
     Dates: start: 20240801
  14. NIVOLUMAB [Suspect]
     Active Substance: NIVOLUMAB
     Dosage: 480 MG ONCE
     Route: 042
     Dates: start: 20240829
  15. NIVOLUMAB [Suspect]
     Active Substance: NIVOLUMAB
     Dosage: 480 MG ONCE
     Route: 042
     Dates: start: 20240926
  16. NIVOLUMAB [Suspect]
     Active Substance: NIVOLUMAB
     Dosage: 480 MG ONCE
     Route: 042
     Dates: start: 20241024
  17. NIVOLUMAB [Suspect]
     Active Substance: NIVOLUMAB
     Dosage: 480 MG ONCE
     Route: 042
     Dates: start: 20241121
  18. NIVOLUMAB [Suspect]
     Active Substance: NIVOLUMAB
     Dosage: 480 MG ONCE
     Route: 042
     Dates: start: 20241219
  19. NIVOLUMAB [Suspect]
     Active Substance: NIVOLUMAB
     Dosage: 480 MG ONCE
     Route: 042
     Dates: start: 20250116
  20. NIVOLUMAB [Suspect]
     Active Substance: NIVOLUMAB
     Dosage: 480 MG ONCE
     Route: 042
     Dates: start: 20250213
  21. NIVOLUMAB [Suspect]
     Active Substance: NIVOLUMAB
     Dosage: 480 MG ONCE
     Route: 042
     Dates: start: 20250313
  22. NIVOLUMAB [Suspect]
     Active Substance: NIVOLUMAB
     Dosage: 480 MG ONCE
     Route: 042
     Dates: start: 20250410
  23. NIVOLUMAB [Suspect]
     Active Substance: NIVOLUMAB
     Dosage: 480 MG ONCE
     Route: 042
     Dates: start: 20250506
  24. NIVOLUMAB [Suspect]
     Active Substance: NIVOLUMAB
     Dosage: 480 MG ONCE
     Route: 042
     Dates: start: 20250606
  25. NIVOLUMAB [Suspect]
     Active Substance: NIVOLUMAB
     Dosage: 480 MG ONCE
     Route: 042
     Dates: start: 20250704
  26. NIVOLUMAB [Suspect]
     Active Substance: NIVOLUMAB
     Dosage: 480 MG ONCE
     Route: 042
     Dates: start: 20250731
  27. NIVOLUMAB [Suspect]
     Active Substance: NIVOLUMAB
     Dosage: 480 MG ONCE
     Route: 042
     Dates: start: 20250829
  28. AMOXICILLIN [Concomitant]
     Active Substance: AMOXICILLIN
     Indication: Prophylaxis
     Dosage: UNK
     Route: 048
     Dates: start: 20240315, end: 20240321

REACTIONS (4)
  - Hepatic cytolysis [Recovered/Resolved]
  - Oropharyngeal pain [Recovered/Resolved]
  - Dysphonia [Recovered/Resolved]
  - Stomatitis [Recovered/Resolved]

NARRATIVE: CASE EVENT DATE: 20240214
